FAERS Safety Report 9654084 (Version 1)
Quarter: 2013Q4

REPORT INFORMATION
  Report Type: Spontaneous
  Country: US (occurrence: US)
  Receive Date: 20131029
  Receipt Date: 20131029
  Transmission Date: 20140711
  Serious: No
  Sender: FDA-Public Use
  Company Number: US-BIOGENIDEC-2013BI083112

PATIENT
  Age: 60 Year
  Sex: Male

DRUGS (6)
  1. TECFIDERA [Suspect]
     Indication: MULTIPLE SCLEROSIS
     Route: 048
     Dates: start: 20130809, end: 20130815
  2. TECFIDERA [Suspect]
     Indication: MULTIPLE SCLEROSIS
     Route: 048
     Dates: start: 20130816
  3. BACLOFEN [Concomitant]
     Indication: PAIN IN EXTREMITY
  4. DEPAKOTE [Concomitant]
     Indication: PAIN IN EXTREMITY
  5. DEPAKOTE [Concomitant]
     Indication: PAIN IN EXTREMITY
  6. DEPAKOTE [Concomitant]
     Indication: NECK PAIN

REACTIONS (5)
  - Fatigue [Not Recovered/Not Resolved]
  - Peroneal nerve palsy [Not Recovered/Not Resolved]
  - Pain in extremity [Not Recovered/Not Resolved]
  - Neck pain [Not Recovered/Not Resolved]
  - Gait disturbance [Not Recovered/Not Resolved]
